FAERS Safety Report 26129041 (Version 2)
Quarter: 2025Q4

REPORT INFORMATION
  Report Type: Report from Study
  Country: EU (occurrence: EU)
  Receive Date: 20251208
  Receipt Date: 20251215
  Transmission Date: 20260117
  Serious: Yes (Hospitalization, Other)
  Sender: Haleon PLC
  Company Number: EU-002147023-NVSC2025DE033093

PATIENT
  Sex: Male

DRUGS (9)
  1. DICLOFENAC [Suspect]
     Active Substance: DICLOFENAC
     Indication: Axial spondyloarthritis
     Dosage: 100 MG (7 DAYS WEEK)
  2. DICLOFENAC [Suspect]
     Active Substance: DICLOFENAC
     Dosage: 150 MG
     Dates: start: 20040909, end: 20191101
  3. DICLOFENAC [Suspect]
     Active Substance: DICLOFENAC
     Dosage: 150 MG
     Dates: start: 20200701, end: 20210401
  4. DICLOFENAC [Suspect]
     Active Substance: DICLOFENAC
     Dosage: 150 MG
     Dates: start: 20191102, end: 20200201
  5. COSENTYX [Suspect]
     Active Substance: SECUKINUMAB
     Indication: Axial spondyloarthritis
     Dosage: 150 MG, Q4W
     Dates: start: 20171212
  6. SECUKINUMAB [Suspect]
     Active Substance: SECUKINUMAB
     Indication: Axial spondyloarthritis
     Dosage: 150 MG, Q4W
     Dates: start: 20171212
  7. COSENTYX [Concomitant]
     Active Substance: SECUKINUMAB
     Indication: Product used for unknown indication
     Dosage: UNK
  8. METHOTREXATE [Concomitant]
     Active Substance: METHOTREXATE
     Indication: Axial spondyloarthritis
     Dosage: UNK
  9. METHOTREXATE [Concomitant]
     Active Substance: METHOTREXATE
     Dosage: 15 MG, QW
     Dates: start: 20160812

REACTIONS (3)
  - Oesophageal stenosis [Not Recovered/Not Resolved]
  - Dysphagia [Not Recovered/Not Resolved]
  - Peptic ulcer [Not Recovered/Not Resolved]

NARRATIVE: CASE EVENT DATE: 20231222
